FAERS Safety Report 8590147-0 (Version None)
Quarter: 2012Q3

REPORT INFORMATION
  Report Type: 
  Country: None (occurrence: None)
  Receive Date: 20120813
  Receipt Date: 20120803
  Transmission Date: 20120928
  Serious: Yes (Hospitalization)
  Sender: FDA-Public Use
  Company Number: US-ASTRAZENECA-2012SE55068

PATIENT
  Age: 60 Year
  Sex: Male

DRUGS (7)
  1. BETA BLOCKERS [Concomitant]
  2. ASPIRIN [Concomitant]
  3. ACE INHIBITORS [Concomitant]
  4. PLACEBO [Concomitant]
  5. PPI [Concomitant]
  6. STATIN [Concomitant]
  7. BRILINTA [Suspect]
     Indication: ACUTE CORONARY SYNDROME
     Route: 048

REACTIONS (1)
  - DYSPNOEA [None]
